FAERS Safety Report 8170663-6 (Version None)
Quarter: 2012Q1

REPORT INFORMATION
  Report Type: 
  Country: None (occurrence: None)
  Receive Date: 20120228
  Receipt Date: 20120217
  Transmission Date: 20120608
  Serious: Yes (Other)
  Sender: FDA-Public Use
  Company Number: US-JNJFOC-20120210268

PATIENT
  Sex: Male

DRUGS (4)
  1. REMICADE [Suspect]
     Dosage: WEEK 0 AND 2
     Route: 042
     Dates: start: 20120101
  2. REMICADE [Suspect]
     Indication: CROHN'S DISEASE
     Dosage: SECOND INFUSION
     Route: 042
     Dates: start: 20120127
  3. OMEPRAZOLE [Concomitant]
     Route: 065
  4. APRISO [Concomitant]
     Route: 065

REACTIONS (4)
  - HYPOTENSION [None]
  - INFUSION RELATED REACTION [None]
  - DYSPNOEA [None]
  - MUSCULAR WEAKNESS [None]
